FAERS Safety Report 18659727 (Version 2)
Quarter: 2021Q2

REPORT INFORMATION
  Report Type: Spontaneous
  Country: BR (occurrence: BR)
  Receive Date: 20201224
  Receipt Date: 20210602
  Transmission Date: 20210717
  Serious: No
  Sender: FDA-Public Use
  Company Number: BR-PFIZER INC-2020504952

PATIENT
  Sex: Female

DRUGS (5)
  1. XALATAN [Suspect]
     Active Substance: LATANOPROST
     Dosage: ONE DROP IN EACH EYE ONCE A DAY AT NIGHT
  2. XALATAN [Suspect]
     Active Substance: LATANOPROST
     Dosage: ONE DROP IN EACH EYE ONCE A DAY AT NIGHT
  3. PRESSALIV [DORZOLAMIDE HYDROCHLORIDE;TIMOLOL MALEATE] [Concomitant]
     Dosage: UNK
  4. GLAUB [Concomitant]
     Active Substance: BRIMONIDINE TARTRATE
     Dosage: UNK
  5. XALATAN [Suspect]
     Active Substance: LATANOPROST
     Indication: ANGLE CLOSURE GLAUCOMA
     Dosage: ONE DROP IN EACH EYE ONCE A DAY AT NIGHT

REACTIONS (3)
  - Depression [Not Recovered/Not Resolved]
  - Poor quality product administered [Unknown]
  - Product storage error [Unknown]

NARRATIVE: CASE EVENT DATE: 202009
